FAERS Safety Report 7931896-4 (Version None)
Quarter: 2011Q4

REPORT INFORMATION
  Report Type: 
  Country: None (occurrence: None)
  Receive Date: 20111121
  Receipt Date: 20111108
  Transmission Date: 20120403
  Serious: Yes (Hospitalization, Other)
  Sender: FDA-Public Use
  Company Number: US-ELI_LILLY_AND_COMPANY-US201010000083

PATIENT
  Sex: Female

DRUGS (13)
  1. INSULIN [Concomitant]
     Indication: DIABETES MELLITUS
  2. SYNTHROID [Concomitant]
     Dosage: 50 MG, UNK
  3. METFORMIN HCL [Concomitant]
  4. FORTEO [Suspect]
     Indication: OSTEOPOROSIS
     Dosage: 20 UG, DAILY (1/D)
     Dates: start: 20101207
  5. MULTI-VITAMIN [Concomitant]
  6. SIMVASTATIN [Concomitant]
  7. EVISTA [Suspect]
     Indication: OSTEOPOROSIS
     Dosage: 60 MG, DAILY (1/D)
  8. FORTEO [Suspect]
     Dosage: 20 UG, QD
  9. GLIMEPIRIDE [Concomitant]
     Dosage: UNK, BID
  10. FISH OIL [Concomitant]
  11. CALCIUM [Concomitant]
     Dosage: 2000 MG, 5/W
  12. VITAMIN D [Concomitant]
  13. CALCIUM [Concomitant]
     Dosage: 1000 MG, 2/W

REACTIONS (20)
  - VISUAL ACUITY REDUCED [None]
  - THERMAL BURN [None]
  - TINNITUS [None]
  - EXOSTOSIS [None]
  - BURN INFECTION [None]
  - BONE DENSITY DECREASED [None]
  - CYST [None]
  - CORNEAL DYSTROPHY [None]
  - NODULE [None]
  - DRUG INEFFECTIVE [None]
  - THYROID NEOPLASM [None]
  - SYNOVIAL CYST [None]
  - CORNEAL TRANSPLANT [None]
  - ARTHRITIS [None]
  - HAEMORRHAGE [None]
  - DIABETES MELLITUS [None]
  - BLOOD CALCIUM DECREASED [None]
  - OEDEMA PERIPHERAL [None]
  - VOCAL CORD DISORDER [None]
  - PAIN [None]
